FAERS Safety Report 10983389 (Version 1)
Quarter: 2015Q2

REPORT INFORMATION
  Report Type: Other
  Country: DE (occurrence: DE)
  Receive Date: 20150403
  Receipt Date: 20150403
  Transmission Date: 20150821
  Serious: Yes (Other)
  Sender: FDA-Public Use
  Company Number: DE-EMD SERONO-8018971

PATIENT
  Age: 47 Year
  Sex: Female

DRUGS (2)
  1. METHYLPREDNISOLONE. [Concomitant]
     Active Substance: METHYLPREDNISOLONE
     Indication: MULTIPLE SCLEROSIS
     Route: 042
     Dates: start: 1995, end: 201304
  2. REBIF [Suspect]
     Active Substance: INTERFERON BETA-1A
     Indication: MULTIPLE SCLEROSIS
     Route: 058
     Dates: start: 2005

REACTIONS (7)
  - Hemiparesis [Unknown]
  - Drug prescribing error [Unknown]
  - Neuromyelitis optica [Unknown]
  - Amaurosis [Unknown]
  - Gait disturbance [Unknown]
  - Central nervous system lesion [Unknown]
  - Aphasia [Unknown]

NARRATIVE: CASE EVENT DATE: 201201
